FAERS Safety Report 8294130-4 (Version None)
Quarter: 2012Q2

REPORT INFORMATION
  Report Type: 
  Country: None (occurrence: None)
  Receive Date: 20120418
  Receipt Date: 20120411
  Transmission Date: 20120825
  Serious: Yes (Hospitalization)
  Sender: FDA-Public Use
  Company Number: PHHY2012FR014729

PATIENT
  Sex: Female
  Weight: 80 kg

DRUGS (9)
  1. ZOLEDRONOC ACID [Suspect]
     Dosage: 5 MG, UNK
     Route: 042
     Dates: start: 20101201
  2. DILTIAZEM HCL [Concomitant]
  3. PREVISCAN [Concomitant]
     Dates: start: 20030101
  4. CRESTOR [Concomitant]
  5. FIXICAL [Concomitant]
  6. AMIODARONE HCL [Concomitant]
  7. ZOLEDRONOC ACID [Suspect]
     Dosage: 5 MG, UNK
     Route: 042
     Dates: start: 20111216
  8. BISOPROLOL FUMARATE [Concomitant]
  9. URBANYL [Concomitant]

REACTIONS (2)
  - FALL [None]
  - CONVULSION [None]
